FAERS Safety Report 15230149 (Version 1)
Quarter: 2018Q3

REPORT INFORMATION
  Report Type: Spontaneous
  Country: US (occurrence: US)
  Receive Date: 20180802
  Receipt Date: 20180802
  Transmission Date: 20181010
  Serious: Yes (Other)
  Sender: FDA-Public Use
  Company Number: US-ACCORD-066171

PATIENT
  Age: 61 Year
  Sex: Female
  Weight: 119.75 kg

DRUGS (7)
  1. DOCETAXEL ACCORD [Suspect]
     Active Substance: DOCETAXEL
     Indication: BREAST CANCER
     Dosage: NUMBER OF CYCLES: 06
     Route: 042
     Dates: start: 20140917, end: 20141223
  2. SODIUM CHLORIDE. [Concomitant]
     Active Substance: SODIUM CHLORIDE
     Route: 042
     Dates: start: 20140924, end: 20140924
  3. TYLENOL EXTRA STRENGTH [Concomitant]
     Active Substance: ACETAMINOPHEN
     Dosage: STREGTH: 500 MG
     Route: 038
     Dates: start: 20140924
  4. FLUCONAZOLE. [Concomitant]
     Active Substance: FLUCONAZOLE
     Dosage: IN DEXTROSE
     Route: 042
     Dates: start: 20141223, end: 20141223
  5. INSULIN BOVINE [Concomitant]
     Dosage: 3 UNITS ?SUBCUTANEOUS SOLUTION
     Route: 058
     Dates: start: 20140924
  6. ZOFRAN [Concomitant]
     Active Substance: ONDANSETRON HYDROCHLORIDE
     Route: 042
     Dates: start: 20141119
  7. DEXAMETHASONE. [Concomitant]
     Active Substance: DEXAMETHASONE
     Route: 042
     Dates: start: 20140917

REACTIONS (1)
  - Alopecia [Not Recovered/Not Resolved]
